FAERS Safety Report 21839098 (Version 1)
Quarter: 2023Q1

REPORT INFORMATION
  Report Type: Spontaneous
  Country: US (occurrence: None)
  Receive Date: 20230108
  Receipt Date: 20230108
  Transmission Date: 20230417
  Serious: Yes (Life-Threatening)
  Sender: FDA-Public Use
  Company Number: None

PATIENT
  Age: 71 Year
  Sex: Male
  Weight: 99.34 kg

DRUGS (1)
  1. WARFARIN [Suspect]
     Active Substance: WARFARIN
     Dates: start: 20160628

REACTIONS (3)
  - Cerebellar infarction [None]
  - Cerebrovascular accident [None]
  - Atrial fibrillation [None]

NARRATIVE: CASE EVENT DATE: 20220705
